FAERS Safety Report 4777277-6 (Version None)
Quarter: 2005Q3

REPORT INFORMATION
  Report Type: 
  Country: None (occurrence: None)
  Receive Date: 20050923
  Receipt Date: 20030314
  Transmission Date: 20060218
  Serious: Yes (Hospitalization, Other)
  Sender: FDA-Public Use
  Company Number: AU-NOVOPROD-225875

PATIENT
  Age: 33 Year
  Sex: Male
  Weight: 102 kg

DRUGS (7)
  1. NOVOSEVEN [Suspect]
     Indication: OFF LABEL USE
     Dosage: 4.8 MG, BID
     Route: 042
     Dates: start: 20020806, end: 20020806
  2. RED BLOOD CELLS [Concomitant]
     Dosage: 4 U, UNK
  3. FRESH FROZEN PLASMA [Concomitant]
     Dosage: 5 U, UNK
  4. PLATELETS [Concomitant]
     Dosage: 4 U, UNK
  5. AMICAR [Concomitant]
     Dates: start: 20020805
  6. ANTIBIOTICS [Concomitant]
     Dates: start: 20020805
  7. LASIX [Concomitant]

REACTIONS (3)
  - LOSS OF CONSCIOUSNESS [None]
  - PULMONARY EMBOLISM [None]
  - RENAL FAILURE ACUTE [None]
